FAERS Safety Report 7717258-3 (Version None)
Quarter: 2011Q3

REPORT INFORMATION
  Report Type: 
  Country: None (occurrence: None)
  Receive Date: 20110826
  Receipt Date: 20110826
  Transmission Date: 20111222
  Serious: Yes (Hospitalization)
  Sender: FDA-Public Use
  Company Number: None

PATIENT
  Sex: Female
  Weight: 95 kg

DRUGS (6)
  1. ZOCOR [Concomitant]
  2. QUETIAPINE [Concomitant]
  3. MAG OXIDE [Concomitant]
  4. XANAX [Concomitant]
  5. AMBIEN [Concomitant]
  6. SUTENT [Suspect]
     Indication: RENAL CANCER METASTATIC
     Dosage: 50MG QDX28 DAYS, Q6 WKS
     Dates: start: 20110602, end: 20110810

REACTIONS (2)
  - INTESTINAL OBSTRUCTION [None]
  - NEOPLASM PROGRESSION [None]
